FAERS Safety Report 25394806 (Version 3)
Quarter: 2025Q3

REPORT INFORMATION
  Report Type: Report from Study
  Country: US (occurrence: US)
  Receive Date: 20250604
  Receipt Date: 20250701
  Transmission Date: 20251020
  Serious: Yes (Other)
  Sender: TAKEDA
  Company Number: US-TAKEDA-2025TUS045432

PATIENT
  Age: 30 Year
  Sex: Female

DRUGS (3)
  1. VEDOLIZUMAB [Suspect]
     Active Substance: VEDOLIZUMAB
     Indication: Colitis ulcerative
  2. VEDOLIZUMAB [Suspect]
     Active Substance: VEDOLIZUMAB
     Indication: Colitis ulcerative
     Dosage: 108 MILLIGRAM, Q2WEEKS
     Dates: start: 202504
  3. VEDOLIZUMAB [Suspect]
     Active Substance: VEDOLIZUMAB
     Dosage: 108 MILLIGRAM, Q2WEEKS
     Dates: start: 20250514

REACTIONS (13)
  - Colitis ulcerative [Unknown]
  - Nervousness [Recovered/Resolved]
  - Device leakage [Recovering/Resolving]
  - Fatigue [Recovered/Resolved]
  - Injection site extravasation [Recovered/Resolved]
  - Device malfunction [Unknown]
  - Incorrect dose administered [Unknown]
  - Injection site mass [Recovering/Resolving]
  - Off label use [Unknown]
  - Inappropriate schedule of product administration [Unknown]
  - Injection site warmth [Recovering/Resolving]
  - Injection related reaction [Unknown]
  - Injection site erythema [Not Recovered/Not Resolved]

NARRATIVE: CASE EVENT DATE: 20250514
